FAERS Safety Report 16872146 (Version 1)
Quarter: 2019Q4

REPORT INFORMATION
  Report Type: Spontaneous
  Country: US (occurrence: US)
  Receive Date: 20191001
  Receipt Date: 20191001
  Transmission Date: 20200122
  Serious: No
  Sender: FDA-Public Use
  Company Number: US-ALLERGAN-1850446US

PATIENT

DRUGS (1)
  1. VRAYLAR [Suspect]
     Active Substance: CARIPRAZINE
     Indication: MAJOR DEPRESSION
     Dosage: 1.5 MG, QD
     Route: 065

REACTIONS (2)
  - Off label use [Unknown]
  - Therapeutic response unexpected [Unknown]
